FAERS Safety Report 4499264-8 (Version None)
Quarter: 2004Q4

REPORT INFORMATION
  Report Type: 
  Country: None (occurrence: None)
  Receive Date: 20041111
  Receipt Date: 20041103
  Transmission Date: 20050328
  Serious: Yes (Death)
  Sender: FDA-Public Use
  Company Number: US-JNJFOC-20040908255

PATIENT
  Age: 38 Year
  Sex: Male

DRUGS (8)
  1. FENTANYL [Suspect]
     Route: 062
  2. DIAZEPAM [Suspect]
     Indication: DRUG USE FOR UNKNOWN INDICATION
     Route: 049
  3. HYDROCODONE/ACETAMINOPHEN [Concomitant]
  4. HYDROCODONE/ACETAMINOPHEN [Concomitant]
  5. BUPROPION HCL [Concomitant]
  6. PAROXETINE [Concomitant]
  7. SILDENAFIL [Concomitant]
  8. TEMAZEPAM [Concomitant]

REACTIONS (8)
  - ATAXIA [None]
  - BLOOD GLUCOSE DECREASED [None]
  - CARDIO-RESPIRATORY ARREST [None]
  - DIZZINESS [None]
  - ECG SIGNS OF MYOCARDIAL ISCHAEMIA [None]
  - INTENTIONAL MISUSE [None]
  - LABORATORY TEST ABNORMAL [None]
  - MYDRIASIS [None]
